FAERS Safety Report 9162290 (Version 3)
Quarter: 2013Q1

REPORT INFORMATION
  Report Type: Spontaneous
  Country: US (occurrence: None)
  Receive Date: 20130117
  Receipt Date: 20130207
  Transmission Date: 20140127
  Serious: Yes (Other)
  Sender: FDA-Public Use
  Company Number: 2013034447

PATIENT
  Age: 39 Year
  Sex: Male

DRUGS (3)
  1. HIZENTRA (IMMUNOGLOBULIN HUMAN NORMAL) [Suspect]
     Indication: PRIMARY IMMUNODEFICIENCY SYNDROME
     Dosage: (20 ML AT FOUR SITES SUBCUTANEOUS)
     Route: 058
     Dates: start: 2011
  2. HIZENTRA (IMMUNOGLOBULIN HUMAN NORMAL) [Suspect]
     Indication: HYPOGAMMAGLOBULINAEMIA
     Dosage: (20 ML AT FOUR SITES SUBCUTANEOUS)
     Route: 058
     Dates: start: 2011
  3. ATROVENT MDI (IPRATROPIUM BROMIDE) [Concomitant]

REACTIONS (6)
  - Infusion site induration [None]
  - Infusion site erythema [None]
  - Infusion site ulcer [None]
  - Infusion site scab [None]
  - Eschar [None]
  - Infusion site scar [None]
